FAERS Safety Report 20078061 (Version 2)
Quarter: 2021Q4

REPORT INFORMATION
  Report Type: Spontaneous
  Country: US (occurrence: US)
  Receive Date: 20211117
  Receipt Date: 20211118
  Transmission Date: 20220303
  Serious: Yes (Hospitalization)
  Sender: FDA-Public Use
  Company Number: US-JNJFOC-20211116138

PATIENT
  Age: 39 Year
  Sex: Male
  Weight: 75 kg

DRUGS (2)
  1. TYLENOL [Suspect]
     Active Substance: ACETAMINOPHEN
     Indication: Back pain
     Dosage: TOTAL DOSE 126000 MG OVER 21 DAYS (6000 MG DAILY)
     Route: 048
     Dates: start: 20030415, end: 20030506
  2. DARVOCET [Suspect]
     Active Substance: ACETAMINOPHEN\PROPOXYPHENE HYDROCHLORIDE
     Indication: Back pain
     Dosage: (DEXTROPROPOXYPHENE HYDROCHLORIDE 50 MG/ACETAMINOPHEN 500 MG) DAILY FOR 12 MONTHS
     Route: 048
     Dates: end: 20030417

REACTIONS (3)
  - Acute hepatic failure [Recovered/Resolved]
  - Chest X-ray abnormal [Recovered/Resolved]
  - Accidental overdose [Recovered/Resolved]
